FAERS Safety Report 4576206-8 (Version None)
Quarter: 2005Q1

REPORT INFORMATION
  Report Type: 
  Country: None (occurrence: None)
  Receive Date: 20050209
  Receipt Date: 20050131
  Transmission Date: 20050727
  Serious: Yes (Other)
  Sender: FDA-Public Use
  Company Number: HQWYE030602FEB05

PATIENT
  Sex: Female

DRUGS (2)
  1. ENBREL [Suspect]
     Indication: RHEUMATOID ARTHRITIS
     Dosage: UNKNOWN
     Dates: start: 19990906
  2. ENBREL [Suspect]
     Dosage: UNKNOWN

REACTIONS (7)
  - ARTHRALGIA [None]
  - LYMPHOMA [None]
  - PAIN [None]
  - PERICARDITIS [None]
  - PNEUMONIA [None]
  - SEPSIS [None]
  - SKIN FISSURES [None]
